FAERS Safety Report 20191266 (Version 1)
Quarter: 2021Q4

REPORT INFORMATION
  Report Type: Spontaneous
  Country: US (occurrence: US)
  Receive Date: 20211216
  Receipt Date: 20211216
  Transmission Date: 20220303
  Serious: Yes (Other)
  Sender: FDA-Public Use
  Company Number: US-ENDO PHARMACEUTICALS INC-2021-013515

PATIENT
  Age: 75 Year
  Sex: Male

DRUGS (3)
  1. XIAFLEX [Suspect]
     Active Substance: COLLAGENASE CLOSTRIDIUM HISTOLYTICUM
     Indication: Peyronie^s disease
     Dosage: UNK, UNKNOWN (CYCLE TWO, INJECTION ONE)
     Route: 065
     Dates: start: 20211203
  2. XIAFLEX [Suspect]
     Active Substance: COLLAGENASE CLOSTRIDIUM HISTOLYTICUM
     Dosage: UNK, UNKNOWN (CYCLE ONE, INJECTION ONE)
     Route: 065
  3. XIAFLEX [Suspect]
     Active Substance: COLLAGENASE CLOSTRIDIUM HISTOLYTICUM
     Dosage: UNK, UNKNOWN (CYCLE ONE, INJECTION TWO)
     Route: 065

REACTIONS (5)
  - Vein rupture [Unknown]
  - Penile haematoma [Unknown]
  - Retching [Unknown]
  - Abdominal discomfort [Unknown]
  - Penile swelling [Unknown]

NARRATIVE: CASE EVENT DATE: 20211203
